FAERS Safety Report 24992974 (Version 1)
Quarter: 2025Q1

REPORT INFORMATION
  Report Type: Spontaneous
  Country: GR (occurrence: GR)
  Receive Date: 20250221
  Receipt Date: 20250221
  Transmission Date: 20250409
  Serious: Yes (Hospitalization, Disabling, Congenital Anomaly, Other)
  Sender: STRIDES
  Company Number: GR-STRIDES ARCOLAB LIMITED-2025SP002272

PATIENT
  Sex: Female

DRUGS (3)
  1. DIAZEPAM [Suspect]
     Active Substance: DIAZEPAM
     Indication: Psychotic disorder
     Route: 064
  2. ARIPIPRAZOLE [Suspect]
     Active Substance: ARIPIPRAZOLE
     Indication: Psychotic disorder
     Route: 064
  3. VALPROIC ACID [Suspect]
     Active Substance: VALPROIC ACID
     Indication: Psychotic disorder
     Route: 064

REACTIONS (11)
  - Deafness unilateral [Unknown]
  - Hypertonia neonatal [Unknown]
  - Congenital hypothyroidism [Unknown]
  - Syndactyly [Unknown]
  - Choroidal coloboma [Unknown]
  - Congenital astigmatism [Unknown]
  - Dysmorphism [Unknown]
  - Neurodevelopmental delay [Unknown]
  - Motor developmental delay [Unknown]
  - Hypotonia neonatal [Unknown]
  - Foetal exposure during pregnancy [Unknown]
